FAERS Safety Report 22537740 (Version 2)
Quarter: 2023Q2

REPORT INFORMATION
  Report Type: Spontaneous
  Country: US (occurrence: US)
  Receive Date: 20230608
  Receipt Date: 20230614
  Transmission Date: 20230721
  Serious: Yes (Hospitalization)
  Sender: FDA-Public Use
  Company Number: US-KARYOPHARM-2023KPT001419

PATIENT

DRUGS (10)
  1. XPOVIO [Suspect]
     Active Substance: SELINEXOR
     Indication: Plasma cell myeloma
     Dosage: 80 MG, WEEKLY
     Route: 048
     Dates: start: 20230518, end: 2023
  2. BACTRIM DS [Concomitant]
     Active Substance: SULFAMETHOXAZOLE\TRIMETHOPRIM
  3. DEXAMETHASONE [Concomitant]
     Active Substance: DEXAMETHASONE
  4. GLIPIZIDE [Concomitant]
     Active Substance: GLIPIZIDE
  5. LOPERAMIDE [Concomitant]
     Active Substance: LOPERAMIDE
  6. MARINOL [Concomitant]
     Active Substance: DRONABINOL
  7. NORCO [Concomitant]
     Active Substance: ACETAMINOPHEN\HYDROCODONE BITARTRATE
  8. ONDANSETRON [Concomitant]
     Active Substance: ONDANSETRON
  9. PROMETHAZINE [Concomitant]
     Active Substance: PROMETHAZINE HYDROCHLORIDE
  10. VELCADE [Concomitant]
     Active Substance: BORTEZOMIB

REACTIONS (6)
  - Hallucination [Unknown]
  - Nausea [Unknown]
  - Vomiting [Unknown]
  - Diarrhoea [Unknown]
  - Pneumonia [Unknown]
  - Hyponatraemia [Unknown]

NARRATIVE: CASE EVENT DATE: 20230529
